FAERS Safety Report 4870427-2 (Version None)
Quarter: 2006Q1

REPORT INFORMATION
  Report Type: 
  Country: None (occurrence: None)
  Receive Date: 20060103
  Receipt Date: 20050311
  Transmission Date: 20060701
  Serious: No
  Sender: FDA-Public Use
  Company Number: US-BRISTOL-MYERS SQUIBB COMPANY-12896163

PATIENT
  Sex: Female

DRUGS (1)
  1. DESYREL [Suspect]

REACTIONS (1)
  - PREGNANCY [None]
